FAERS Safety Report 11385759 (Version 3)
Quarter: 2015Q3

REPORT INFORMATION
  Report Type: Spontaneous
  Country: DE (occurrence: DE)
  Receive Date: 20150817
  Receipt Date: 20150930
  Transmission Date: 20151125
  Serious: Yes (Hospitalization)
  Sender: FDA-Public Use
  Company Number: DE-ROCHE-1619757

PATIENT
  Age: 39 Year
  Sex: Female
  Weight: 63 kg

DRUGS (7)
  1. HERCEPTIN [Suspect]
     Active Substance: TRASTUZUMAB
     Dosage: 8 MG/KG AS INITIAL DOSE, 360 MG
     Route: 042
     Dates: start: 20150217, end: 20150722
  2. PERJETA [Suspect]
     Active Substance: PERTUZUMAB
     Indication: PRODUCT USED FOR UNKNOWN INDICATION
     Dosage: INITIAL DOSE 840 MG
     Route: 042
     Dates: start: 20140217, end: 20150722
  3. PERJETA [Suspect]
     Active Substance: PERTUZUMAB
     Route: 042
     Dates: start: 20140310, end: 20150722
  4. HERCEPTIN [Suspect]
     Active Substance: TRASTUZUMAB
     Indication: PRODUCT USED FOR UNKNOWN INDICATION
     Dosage: 8 MG/KG AS INITIAL DOSE
     Route: 042
     Dates: end: 20130828
  5. DOCETAXEL. [Concomitant]
     Active Substance: DOCETAXEL
     Indication: BREAST CANCER
     Route: 065
     Dates: start: 20140217, end: 20140603
  6. TAMOXIFEN [Concomitant]
     Active Substance: TAMOXIFEN
     Indication: BREAST CANCER
     Route: 065
     Dates: start: 201207, end: 201402
  7. GNRH ANALOGUE (UNK INGREDIENTS) [Concomitant]
     Route: 065
     Dates: start: 201207, end: 201402

REACTIONS (2)
  - Pneumonitis [Recovering/Resolving]
  - Lung neoplasm [Unknown]

NARRATIVE: CASE EVENT DATE: 20150324
